FAERS Safety Report 6024345-7 (Version None)
Quarter: 2008Q4

REPORT INFORMATION
  Report Type: 
  Country: None (occurrence: None)
  Receive Date: 20081231
  Receipt Date: 20081222
  Transmission Date: 20090506
  Serious: Yes (Other)
  Sender: FDA-Public Use
  Company Number: BR-BAYER-200824109LA

PATIENT
  Age: 37 Year
  Sex: Female

DRUGS (3)
  1. BETAFERON [Suspect]
     Indication: MULTIPLE SCLEROSIS
     Route: 058
     Dates: start: 20060101
  2. RIVOTRIL [Concomitant]
     Indication: SLEEP DISORDER
     Route: 048
  3. DIAMOX [Concomitant]
     Indication: DRUG USE FOR UNKNOWN INDICATION
     Route: 048

REACTIONS (4)
  - AGGRESSION [None]
  - HEMICEPHALALGIA [None]
  - HOMICIDAL IDEATION [None]
  - INJECTION SITE PAIN [None]
